FAERS Safety Report 14388690 (Version 1)
Quarter: 2018Q1

REPORT INFORMATION
  Report Type: Other
  Country: US (occurrence: US)
  Receive Date: 20180115
  Receipt Date: 20180115
  Transmission Date: 20180509
  Serious: Yes (Other)
  Sender: FDA-Public Use
  Company Number: US-AMNEAL PHARMACEUTICALS-2017AMN00685

PATIENT
  Sex: Male

DRUGS (3)
  1. GUANFACINE. [Suspect]
     Active Substance: GUANFACINE
     Dosage: UNK, UNK FREQ
     Route: 065
  2. GUANFACINE. [Suspect]
     Active Substance: GUANFACINE
     Dosage: UNK, UNK FREQ
     Route: 065
     Dates: start: 201609, end: 201704
  3. GUANFACINE. [Suspect]
     Active Substance: GUANFACINE
     Indication: PRODUCT USED FOR UNKNOWN INDICATION
     Dosage: UNK, UNK FREQ
     Route: 065
     Dates: start: 20170412

REACTIONS (11)
  - Abdominal pain upper [Unknown]
  - Somnolence [Unknown]
  - Medication error [Unknown]
  - Pallor [Unknown]
  - Bradycardia [Unknown]
  - Fatigue [Unknown]
  - Decreased appetite [Unknown]
  - Hypersensitivity [Unknown]
  - Headache [Unknown]
  - Liver function test abnormal [Unknown]
  - Off label use [Unknown]
